FAERS Safety Report 5020816-0 (Version None)
Quarter: 2006Q2

REPORT INFORMATION
  Report Type: 
  Country: None (occurrence: None)
  Receive Date: 20060608
  Receipt Date: 20060526
  Transmission Date: 20061013
  Serious: Yes (Other)
  Sender: FDA-Public Use
  Company Number: US-BRISTOL-MYERS SQUIBB COMPANY-13392352

PATIENT
  Sex: Male
  Weight: 84 kg

DRUGS (3)
  1. ABILIFY [Suspect]
     Indication: SCHIZOPHRENIA
     Dates: start: 20060212, end: 20060524
  2. DEPAKOTE [Suspect]
     Dates: end: 20060524
  3. NAVANE [Concomitant]

REACTIONS (3)
  - DRUG INEFFECTIVE [None]
  - HOMICIDAL IDEATION [None]
  - SCHIZOPHRENIA [None]
